FAERS Safety Report 6938831-6 (Version None)
Quarter: 2010Q3

REPORT INFORMATION
  Report Type: 
  Country: None (occurrence: None)
  Receive Date: 20100824
  Receipt Date: 20100813
  Transmission Date: 20110219
  Serious: Yes (Death, Hospitalization)
  Sender: FDA-Public Use
  Company Number: ES-PFIZER INC-2008070107

PATIENT
  Age: 64 Year
  Sex: Male
  Weight: 61 kg

DRUGS (12)
  1. ERLOTINIB HYDROCHLORIDE [Suspect]
     Indication: NON-SMALL CELL LUNG CANCER
     Dosage: 150 MG, 1X/DAY
     Route: 048
     Dates: start: 20080718, end: 20080818
  2. *PLACEBO [Suspect]
     Indication: NON-SMALL CELL LUNG CANCER
     Dosage: UNK
     Route: 048
     Dates: start: 20080718, end: 20080818
  3. VOLTAREN [Concomitant]
     Dosage: UNK
     Dates: start: 20080401
  4. ENALAPRIL [Concomitant]
     Dosage: UNK
     Dates: start: 20080401
  5. OMEPRAZOLE [Concomitant]
     Dates: start: 20080401
  6. MEGESTROL [Concomitant]
     Dates: start: 20080701
  7. LORAZEPAM [Concomitant]
     Dosage: UNK
     Dates: start: 20080701
  8. FENTANYL CITRATE [Concomitant]
     Dosage: UNK
     Dates: start: 20080601
  9. METFORMIN [Concomitant]
     Dosage: UNK
     Dates: start: 20080701
  10. ALPRAZOLAM [Concomitant]
     Dosage: UNK
     Dates: start: 20070101
  11. SERTRALINE HYDROCHLORIDE [Concomitant]
     Dosage: UNK
     Dates: start: 20070101
  12. MIRTAZAPINE [Concomitant]
     Dosage: UNK
     Dates: start: 20080801

REACTIONS (3)
  - ATAXIA [None]
  - DISEASE PROGRESSION [None]
  - NON-SMALL CELL LUNG CANCER [None]
